FAERS Safety Report 8668514 (Version 3)
Quarter: 2012Q4

REPORT INFORMATION
  Report Type: 
  Country: FR (occurrence: FR)
  Receive Date: 20120717
  Receipt Date: 20121002
  Transmission Date: 20130627
  Serious: Yes (Life-Threatening, Hospitalization)
  Sender: FDA-Public Use
  Company Number: FR-VIIV HEALTHCARE LIMITED-B0813124A

PATIENT
  Sex: Male
  Weight: 4.7 kg

DRUGS (4)
  1. RETROVIR [Suspect]
     Indication: PROPHYLAXIS
     Route: 064
     Dates: start: 20120626, end: 20120626
  2. RETROVIR [Suspect]
     Indication: PROPHYLAXIS
     Route: 065
     Dates: start: 20120626, end: 20120629
  3. KIVEXA [Suspect]
     Indication: PROPHYLAXIS
     Route: 064
     Dates: start: 2011, end: 20120626
  4. KALETRA [Suspect]
     Indication: PROPHYLAXIS
     Route: 064
     Dates: start: 2011, end: 20120626

REACTIONS (12)
  - Foetal distress syndrome [Recovered/Resolved]
  - Lactic acidosis [Recovered/Resolved]
  - Anaemia [Recovered/Resolved]
  - Thrombocytopenia [Recovered/Resolved]
  - Leukopenia [Recovered/Resolved]
  - Electroencephalogram abnormal [Recovering/Resolving]
  - Rash erythematous [Unknown]
  - Tachycardia [Unknown]
  - Renal failure [Recovered/Resolved]
  - Neonatal asphyxia [Recovered/Resolved]
  - Liver function test abnormal [Recovered/Resolved]
  - Foetal exposure during pregnancy [Unknown]
